FAERS Safety Report 6903432-2 (Version None)
Quarter: 2010Q3

REPORT INFORMATION
  Report Type: 
  Country: None (occurrence: None)
  Receive Date: 20100803
  Receipt Date: 20080930
  Transmission Date: 20110219
  Serious: No
  Sender: FDA-Public Use
  Company Number: US-PFIZER INC-2008045841

PATIENT
  Sex: Female
  Weight: 40.9 kg

DRUGS (8)
  1. LYRICA [Suspect]
     Indication: FIBROMYALGIA
     Route: 048
     Dates: start: 20071201, end: 20080701
  2. ANTI-ASTHMATICS [Concomitant]
  3. THYROID TAB [Concomitant]
  4. THEOPHYLLINE [Concomitant]
  5. POTASSIUM CHLORIDE [Concomitant]
     Route: 048
  6. LASIX [Concomitant]
     Route: 048
  7. TRAMADOL HYDROCHLORIDE [Concomitant]
  8. PLAVIX [Concomitant]

REACTIONS (5)
  - DYSPNOEA [None]
  - FEELING ABNORMAL [None]
  - UNEVALUABLE EVENT [None]
  - VISION BLURRED [None]
  - WEIGHT INCREASED [None]
